FAERS Safety Report 4871750-8 (Version None)
Quarter: 2006Q1

REPORT INFORMATION
  Report Type: 
  Country: None (occurrence: None)
  Receive Date: 20060104
  Receipt Date: 20050526
  Transmission Date: 20060701
  Serious: No
  Sender: FDA-Public Use
  Company Number: US-BRISTOL-MYERS SQUIBB COMPANY-12983755

PATIENT
  Sex: Female

DRUGS (3)
  1. DESYREL [Suspect]
  2. NOVOCAIN [Concomitant]
  3. NITROUS OXIDE W/ OXYGEN [Concomitant]

REACTIONS (1)
  - HEADACHE [None]
